FAERS Safety Report 19539897 (Version 1)
Quarter: 2021Q3

REPORT INFORMATION
  Report Type: Report from Study
  Country: EG (occurrence: EG)
  Receive Date: 20210714
  Receipt Date: 20210714
  Transmission Date: 20211014
  Serious: Yes (Death, Other)
  Sender: FDA-Public Use
  Company Number: NVSC2021EG157597

PATIENT
  Age: 68 Year
  Sex: Female

DRUGS (1)
  1. ENTRESTO [Suspect]
     Active Substance: SACUBITRIL\VALSARTAN
     Indication: CARDIAC FAILURE
     Dosage: 1 DF, QD
     Route: 048
     Dates: start: 20210206

REACTIONS (4)
  - Hypoglycaemic coma [Recovered/Resolved]
  - Blood glucose decreased [Recovered/Resolved]
  - Renal impairment [Recovering/Resolving]
  - Death [Fatal]

NARRATIVE: CASE EVENT DATE: 202103
